FAERS Safety Report 26028733 (Version 1)
Quarter: 2025Q4

REPORT INFORMATION
  Report Type: Spontaneous
  Country: TW (occurrence: TW)
  Receive Date: 20251111
  Receipt Date: 20251111
  Transmission Date: 20260118
  Serious: Yes (Death, Hospitalization)
  Sender: CSL BEHRING
  Company Number: TW-BEH-2025224579

PATIENT
  Age: 69 Year
  Sex: Female
  Weight: 54 kg

DRUGS (10)
  1. BERIPLEX P/N [Suspect]
     Active Substance: COAGULATION FACTOR IX HUMAN\COAGULATION FACTOR VII HUMAN\COAGULATION FACTOR X HUMAN\PROTEIN C\PROTEI
     Indication: Procoagulant therapy
     Dosage: 3 VIALS
     Route: 042
     Dates: start: 20250808, end: 20250809
  2. BERIPLEX P/N [Suspect]
     Active Substance: COAGULATION FACTOR IX HUMAN\COAGULATION FACTOR VII HUMAN\COAGULATION FACTOR X HUMAN\PROTEIN C\PROTEI
     Indication: Procoagulant therapy
     Dosage: 3 VIALS
     Route: 042
     Dates: start: 20250808, end: 20250809
  3. ELIQUIS [Suspect]
     Active Substance: APIXABAN
     Indication: Atrial fibrillation
     Dosage: 5 MG, QD (BID)
     Route: 048
     Dates: start: 20250701, end: 20250729
  4. DIOVAN [Concomitant]
     Active Substance: VALSARTAN
     Dosage: 160 MG, QD
     Route: 048
     Dates: start: 20250702, end: 20250729
  5. TRICHLORMETHIAZIDE [Concomitant]
     Active Substance: TRICHLORMETHIAZIDE
     Dosage: 0.5 TABLET
     Route: 048
     Dates: start: 20250702, end: 20250729
  6. CARVEDILOL [Concomitant]
     Active Substance: CARVEDILOL
     Dosage: UNK, QD
     Route: 048
     Dates: start: 20250702, end: 20250729
  7. RIVOTRIL [Concomitant]
     Active Substance: CLONAZEPAM
     Dosage: 0.5 MG
     Route: 048
     Dates: start: 20250701, end: 20250728
  8. ZOLPIDEM TARTRATE [Concomitant]
     Active Substance: ZOLPIDEM TARTRATE
     Dosage: 1 DF
     Route: 048
     Dates: start: 20250701, end: 20250728
  9. ROSUVASTATIN CALCIUM [Concomitant]
     Active Substance: ROSUVASTATIN CALCIUM
     Dosage: 1 DF, QD
     Route: 048
     Dates: start: 20250701, end: 20250728
  10. CRESTOR [Concomitant]
     Active Substance: ROSUVASTATIN CALCIUM
     Dosage: 10.4 MG, OD
     Route: 048
     Dates: start: 20250701, end: 20250728

REACTIONS (5)
  - Ventricular fibrillation [Fatal]
  - Arrhythmia [Unknown]
  - Loss of consciousness [Unknown]
  - Embolism [Unknown]
  - Off label use [Unknown]

NARRATIVE: CASE EVENT DATE: 20250801
